FAERS Safety Report 25735521 (Version 1)
Quarter: 2025Q3

REPORT INFORMATION
  Report Type: Spontaneous
  Country: CA (occurrence: CA)
  Receive Date: 20250828
  Receipt Date: 20250828
  Transmission Date: 20251020
  Serious: Yes (Hospitalization, Other)
  Sender: CELLTRION
  Company Number: CA-PFIZER INC-202500106224

PATIENT

DRUGS (1)
  1. INFLECTRA [Suspect]
     Active Substance: INFLIXIMAB-DYYB
     Indication: Crohn^s disease
     Route: 042
     Dates: start: 20250325

REACTIONS (7)
  - Pneumonia bacterial [Unknown]
  - Abdominal pain [Unknown]
  - Headache [Unknown]
  - Hepatic infection fungal [Unknown]
  - Pneumonia fungal [Unknown]
  - Renal injury [Unknown]
  - Fungal infection [Unknown]

NARRATIVE: CASE EVENT DATE: 20250101
